FAERS Safety Report 17571467 (Version 1)
Quarter: 2020Q1

REPORT INFORMATION
  Report Type: Report from Study
  Country: US (occurrence: US)
  Receive Date: 20200323
  Receipt Date: 20200323
  Transmission Date: 20200409
  Serious: Yes (Other)
  Sender: FDA-Public Use
  Company Number: NVSC2020US078490

PATIENT
  Sex: Female

DRUGS (3)
  1. CYCLOPHOSPHAMIDE. [Concomitant]
     Active Substance: CYCLOPHOSPHAMIDE
     Indication: CHEMOTHERAPY
     Dosage: UNK
     Route: 065
  2. FLUDARABINE [Concomitant]
     Active Substance: FLUDARABINE PHOSPHATE
     Indication: CHEMOTHERAPY
     Dosage: UNK
     Route: 065
  3. KYMRIAH [Suspect]
     Active Substance: TISAGENLECLEUCEL
     Indication: B-CELL TYPE ACUTE LEUKAEMIA
     Dosage: UNK
     Route: 041

REACTIONS (13)
  - Hypogammaglobulinaemia [Unknown]
  - Neurotoxicity [Recovered/Resolved]
  - Headache [Unknown]
  - Lymphocyte count decreased [Unknown]
  - Paraparesis [Unknown]
  - Motor dysfunction [Unknown]
  - Haemoglobin decreased [Unknown]
  - Dysarthria [Unknown]
  - Neutrophil count decreased [Unknown]
  - Hemiparesis [Unknown]
  - White blood cell count decreased [Unknown]
  - Haematocrit decreased [Unknown]
  - Tremor [Unknown]
